FAERS Safety Report 6875545-5 (Version None)
Quarter: 2010Q3

REPORT INFORMATION
  Report Type: 
  Country: None (occurrence: None)
  Receive Date: 20100727
  Receipt Date: 20100715
  Transmission Date: 20110219
  Serious: No
  Sender: FDA-Public Use
  Company Number: US-JNJFOC-20100705712

PATIENT
  Sex: Female
  Weight: 81.65 kg

DRUGS (2)
  1. SANDOZ FENTANYL TRANSDERMAL SYSTEM [Suspect]
     Indication: FIBROMYALGIA
     Dosage: NDC# 0178-7243-55
     Route: 062
  2. UNKNOWN MEDICATION [Concomitant]
     Indication: PRE-EXISTING DISEASE
     Route: 065

REACTIONS (4)
  - FEELING ABNORMAL [None]
  - PAIN [None]
  - WITHDRAWAL SYNDROME [None]
  - WRONG TECHNIQUE IN DRUG USAGE PROCESS [None]
